FAERS Safety Report 9839815 (Version 1)
Quarter: 2014Q1

REPORT INFORMATION
  Report Type: Other
  Country: BR (occurrence: BR)
  Receive Date: 20140124
  Receipt Date: 20140124
  Transmission Date: 20141002
  Serious: Yes (Other)
  Sender: FDA-Public Use
  Company Number: BR-BRISTOL-MYERS SQUIBB COMPANY-20073128

PATIENT
  Age: 65 Year
  Sex: Female

DRUGS (4)
  1. METFORMIN HCL [Suspect]
     Indication: DIABETES MELLITUS
  2. LOSARTAN [Suspect]
     Indication: HYPERTENSION
  3. NPH INSULIN [Suspect]
     Indication: DIABETES MELLITUS
  4. ATENOLOL [Suspect]
     Indication: HYPERTENSION

REACTIONS (5)
  - Dacryocystitis [Unknown]
  - Diffuse large B-cell lymphoma [Unknown]
  - Hypermetropia [Unknown]
  - Myopia [Unknown]
  - Eyelid oedema [Unknown]
